FAERS Safety Report 10390201 (Version 1)
Quarter: 2014Q1

REPORT INFORMATION
  Report Type: Spontaneous
  Country: US (occurrence: None)
  Receive Date: 20140306
  Receipt Date: 20140306
  Transmission Date: 20141002
  Serious: Yes (Other)
  Sender: FDA-Public Use
  Company Number: 163-21880-13014305

PATIENT
  Age: 60 Year
  Sex: Male

DRUGS (4)
  1. REVLIMID (LENALIDOMIDE) (25 MILLIGRAM, CAPSULES) [Suspect]
     Indication: PLASMA CELL MYELOMA
     Dosage: 21 IN 21 D
     Route: 048
     Dates: start: 20120823, end: 201301
  2. PROCHLORPERAZINE (PROCHLORPERAZINE) [Concomitant]
  3. LOMOTIL [Concomitant]
  4. COMPAZINE (PROCHLORPERAZINE EDISYLATE) [Concomitant]

REACTIONS (2)
  - Anaemia [None]
  - Neutropenia [None]
